FAERS Safety Report 8766422 (Version 1)
Quarter: 2012Q4

REPORT INFORMATION
  Report Type: Report from Study
  Country: GB (occurrence: GB)
  Receive Date: 20120904
  Receipt Date: 20120904
  Transmission Date: 20130627
  Serious: Yes (Other)
  Sender: FDA-Public Use
  Company Number: GB-ROCHE-1105510

PATIENT
  Age: 66 Year
  Sex: Female
  Weight: 65 kg

DRUGS (8)
  1. AVASTIN [Suspect]
     Indication: GASTRIC CANCER
     Dosage: most recent drug administartion on 26/4/2012, actual dose given: 475 mg
     Route: 042
     Dates: start: 20120301
  2. XELODA [Suspect]
     Indication: GASTRIC CANCER
     Dosage: most recent dose administered on 17/5/2012, actual dose given:1000 mg
     Route: 048
     Dates: start: 20120301
  3. CISPLATIN [Suspect]
     Indication: GASTRIC CANCER
     Dosage: most recent dose administered on 26/04/2012, actual dose given:100 mg
     Route: 042
     Dates: start: 20120301
  4. EPIRUBICIN HYDROCHLORIDE [Suspect]
     Indication: GASTRIC CANCER
     Dosage: most recent dose administered on 26/4/2012, actual dose given:42 mg
     Route: 042
     Dates: start: 20120301
  5. PRAVASTATIN [Concomitant]
     Route: 048
     Dates: start: 20000606
  6. NITRAZEPAM [Concomitant]
     Route: 048
     Dates: start: 20000606
  7. AMLODIPINE [Concomitant]
     Route: 048
     Dates: start: 20110928
  8. RAMIPRIL [Concomitant]
     Route: 048
     Dates: start: 20120404

REACTIONS (1)
  - Impaired healing [Not Recovered/Not Resolved]
